FAERS Safety Report 8135543-0 (Version None)
Quarter: 2012Q1

REPORT INFORMATION
  Report Type: 
  Country: None (occurrence: None)
  Receive Date: 20120210
  Receipt Date: 20120202
  Transmission Date: 20120608
  Serious: Yes (Death)
  Sender: FDA-Public Use
  Company Number: UTC-014639

PATIENT
  Age: 75 Year
  Sex: Female
  Weight: 48.18 kg

DRUGS (5)
  1. REMODULIN [Suspect]
     Indication: COR PULMONALE CHRONIC
     Dosage: 67.68 UG/KG (0.047 UG/KG, 1 IN 1  MIN), SUBCUTANEOUS
     Route: 058
     Dates: start: 20071128
  2. REMODULIN [Suspect]
     Indication: PULMONARY HYPERTENSION
     Dosage: 67.68 UG/KG (0.047 UG/KG, 1 IN 1  MIN), SUBCUTANEOUS
     Route: 058
     Dates: start: 20071128
  3. PLAVIX [Concomitant]
  4. DIURETICS (DIURETICS) [Concomitant]
  5. METOPROLOL TARTRATE [Concomitant]

REACTIONS (1)
  - DEATH [None]
